FAERS Safety Report 21682312 (Version 1)
Quarter: 2022Q4

REPORT INFORMATION
  Report Type: Spontaneous
  Country: CN (occurrence: None)
  Receive Date: 20221205
  Receipt Date: 20221205
  Transmission Date: 20230113
  Serious: Yes (Other)
  Sender: FDA-Public Use
  Company Number: CN-ROCHE-3229524

PATIENT
  Age: 72 Year
  Sex: Female
  Weight: 56 kg

DRUGS (4)
  1. OXALIPLATIN [Suspect]
     Active Substance: OXALIPLATIN
     Indication: Pulmonary mass
     Route: 041
     Dates: start: 20220922
  2. FLUOROURACIL [Suspect]
     Active Substance: FLUOROURACIL
     Indication: Pulmonary mass
     Route: 041
     Dates: start: 20220922
  3. FLUOROURACIL [Suspect]
     Active Substance: FLUOROURACIL
     Route: 042
     Dates: start: 20220922
  4. AVASTIN [Suspect]
     Active Substance: BEVACIZUMAB
     Indication: Pulmonary mass
     Route: 041
     Dates: start: 20220922

REACTIONS (1)
  - Myelosuppression [Unknown]

NARRATIVE: CASE EVENT DATE: 20221013
